FAERS Safety Report 9172929 (Version 1)
Quarter: 2012Q4

REPORT INFORMATION
  Report Type: 
  Country: US (occurrence: US)
  Receive Date: 20120911
  Receipt Date: 20120911
  Transmission Date: 20130627
  Serious: No
  Sender: FDA-Public Use
  Company Number: US-009507513-1209USA003614

PATIENT

DRUGS (1)
  1. COPPERTONE KIDS SUNSCREEN STICK SPF-55 [Suspect]
     Indication: PRODUCT USED FOR UNKNOWN INDICATION
     Dosage: UNK, Once
     Route: 061

REACTIONS (1)
  - Burning sensation [Recovered/Resolved]
